FAERS Safety Report 22914284 (Version 3)
Quarter: 2024Q1

REPORT INFORMATION
  Report Type: Spontaneous
  Country: JP (occurrence: JP)
  Receive Date: 20230906
  Receipt Date: 20240121
  Transmission Date: 20240410
  Serious: Yes (Death, Life-Threatening, Hospitalization)
  Sender: FDA-Public Use
  Company Number: JP-JNJFOC-20230908841

PATIENT
  Age: 6 Decade
  Sex: Male

DRUGS (2)
  1. SIMPONI [Suspect]
     Active Substance: GOLIMUMAB
     Indication: Rheumatoid arthritis
     Dosage: THERAPY END DATE - /JUNE/2023.
     Route: 058
     Dates: start: 202303
  2. METHOTREXATE [Concomitant]
     Active Substance: METHOTREXATE
     Indication: Rheumatoid arthritis
     Dosage: THERAPY END DATE-/JUNE/2023.?DOSE UNKNOWN
     Route: 048

REACTIONS (1)
  - Metastatic carcinoid tumour [Fatal]

NARRATIVE: CASE EVENT DATE: 20230301
